FAERS Safety Report 4353636-0 (Version None)
Quarter: 2004Q2

REPORT INFORMATION
  Report Type: 
  Country: None (occurrence: None)
  Receive Date: 20040430
  Receipt Date: 20040421
  Transmission Date: 20050107
  Serious: Yes (Death)
  Sender: FDA-Public Use
  Company Number: 206037

PATIENT
  Sex: Female

DRUGS (4)
  1. MABTHERA (RITUXIMAB) CONC FOR SOLUTION FOR INFUSION [Suspect]
     Indication: CHRONIC LYMPHOCYTIC LEUKAEMIA
     Dosage: 700 MG, X4, INTRAVENOUS
     Route: 042
     Dates: start: 19991207, end: 20000306
  2. FLUDARABINE PHOSPHATE [Suspect]
     Indication: CHRONIC LYMPHOCYTIC LEUKAEMIA
     Dosage: 45 MG, X4, INTRAVENOUS
     Route: 042
     Dates: start: 19990927, end: 20010114
  3. ALLOPURINOL [Concomitant]
  4. CO-TRIMOXAZOLE (TRIMETHOPRIM SULFAMETHOXAZOLE) [Concomitant]

REACTIONS (2)
  - LUNG INFILTRATION [None]
  - PNEUMONIA FUNGAL [None]
